FAERS Safety Report 9399381 (Version 1)
Quarter: 2013Q3

REPORT INFORMATION
  Report Type: Spontaneous
  Country: CN (occurrence: None)
  Receive Date: 20130710
  Receipt Date: 20130710
  Transmission Date: 20140515
  Serious: Yes (Death)
  Sender: FDA-Public Use
  Company Number: CN-JNJFOC-20130605743

PATIENT
  Age: 65 Year
  Sex: Female

DRUGS (1)
  1. DECITABINE [Suspect]
     Indication: ACUTE MYELOID LEUKAEMIA
     Dosage: IN 1 CYCLICAL, INTRAVENOUS
     Route: 042

REACTIONS (1)
  - Respiratory failure [None]
